FAERS Safety Report 25707472 (Version 1)
Quarter: 2025Q3

REPORT INFORMATION
  Report Type: Spontaneous
  Country: US (occurrence: US)
  Receive Date: 20250820
  Receipt Date: 20250820
  Transmission Date: 20251020
  Serious: No
  Sender: ASTELLAS
  Company Number: US-ASTELLAS-2025-AER-017221

PATIENT
  Age: 71 Year
  Sex: Male

DRUGS (1)
  1. XTANDI [Suspect]
     Active Substance: ENZALUTAMIDE
     Indication: Product used for unknown indication
     Route: 065
     Dates: start: 202503, end: 202503

REACTIONS (3)
  - Fall [Recovering/Resolving]
  - Gait disturbance [Recovering/Resolving]
  - Coordination abnormal [Recovering/Resolving]

NARRATIVE: CASE EVENT DATE: 20250301
